FAERS Safety Report 8869347 (Version 1)
Quarter: 2012Q4

REPORT INFORMATION
  Report Type: 
  Country: FR (occurrence: FR)
  Receive Date: 20121028
  Receipt Date: 20121028
  Transmission Date: 20130627
  Serious: Yes (Other)
  Sender: FDA-Public Use
  Company Number: FR-NOVOPROD-356526

PATIENT
  Age: 80 Year
  Sex: Male

DRUGS (5)
  1. VICTOZA [Suspect]
     Indication: TYPE 2 DIABETES MELLITUS
     Dosage: UNK
     Route: 065
     Dates: start: 20110113, end: 20120709
  2. METFORMINE [Concomitant]
     Dosage: 2 g, qd
     Route: 048
     Dates: start: 2005
  3. AMAREL [Concomitant]
     Dosage: 1 mg, qd
     Route: 048
     Dates: start: 20100506
  4. OMEPRAZOLE [Concomitant]
     Dosage: 20 mg, qd
     Route: 048
     Dates: start: 20110428
  5. CRESTOR [Concomitant]
     Dosage: 5 mg, qd
     Route: 048
     Dates: start: 20051020

REACTIONS (2)
  - Fatigue [Recovered/Resolved]
  - Abdominal pain [Recovered/Resolved]
